FAERS Safety Report 9979500 (Version 3)
Quarter: 2015Q1

REPORT INFORMATION
  Report Type: Report from Study
  Country: US (occurrence: US)
  Receive Date: 20140306
  Receipt Date: 20150216
  Transmission Date: 20150721
  Serious: No
  Sender: FDA-Public Use
  Company Number: US-ABBVIE-13P-163-1154666-00

PATIENT
  Age: 20 Year
  Sex: Male
  Weight: 49.94 kg

DRUGS (5)
  1. HUMIRA [Suspect]
     Active Substance: ADALIMUMAB
     Dates: start: 2013, end: 2013
  2. METHOTREXATE [Concomitant]
     Active Substance: METHOTREXATE
     Indication: CROHN^S DISEASE
     Dosage: EVERY THURSDAY
     Route: 050
  3. HUMIRA [Suspect]
     Active Substance: ADALIMUMAB
     Dates: start: 2013, end: 201402
  4. IRON [Concomitant]
     Active Substance: IRON
     Indication: PRODUCT USED FOR UNKNOWN INDICATION
     Dosage: EVERY TUESDAY X5 DOSES, 3RD DOSE REC^D 01 OCT 2013
     Route: 042
  5. HUMIRA [Suspect]
     Active Substance: ADALIMUMAB
     Indication: CROHN^S DISEASE
     Dosage: LOADING DOSE

REACTIONS (7)
  - Nasopharyngitis [Recovered/Resolved]
  - Injection site pain [Unknown]
  - Injection site pain [Not Recovered/Not Resolved]
  - Rhinorrhoea [Recovered/Resolved]
  - Injection site pain [Not Recovered/Not Resolved]
  - Epistaxis [Recovered/Resolved]
  - Cough [Recovered/Resolved]

NARRATIVE: CASE EVENT DATE: 20130926
